FAERS Safety Report 9657736 (Version 1)
Quarter: 2013Q4

REPORT INFORMATION
  Report Type: Spontaneous
  Country: US (occurrence: US)
  Receive Date: 20131030
  Receipt Date: 20131030
  Transmission Date: 20140711
  Serious: No
  Sender: FDA-Public Use
  Company Number: US-ENDO PHARMACEUTICALS INC.-HCDA20130042

PATIENT
  Sex: Male

DRUGS (1)
  1. HYDROCODONE/ACETAMINOPHEN 10MG/500MG [Suspect]
     Indication: INTERVERTEBRAL DISC DEGENERATION
     Dosage: 40/2000 MG
     Route: 048
     Dates: start: 2005

REACTIONS (5)
  - Haematochezia [Unknown]
  - Depression [Unknown]
  - Aggression [Unknown]
  - Weight decreased [Unknown]
  - Decreased appetite [Unknown]
